FAERS Safety Report 8591498-6 (Version None)
Quarter: 2012Q3

REPORT INFORMATION
  Report Type: 
  Country: None (occurrence: None)
  Receive Date: 20120801
  Receipt Date: 20120720
  Transmission Date: 20120928
  Serious: Yes (Other)
  Sender: FDA-Public Use
  Company Number: 2012AP002184

PATIENT
  Sex: Female

DRUGS (2)
  1. ALENDRONATE SODIUM [Suspect]
     Indication: OSTEOPOROSIS
  2. ALENDRONATE SODIUM [Suspect]
     Indication: OSTEOPOROSIS

REACTIONS (6)
  - BONE DISORDER [None]
  - FEMUR FRACTURE [None]
  - MULTIPLE INJURIES [None]
  - PAIN [None]
  - EMOTIONAL DISTRESS [None]
  - MENTAL DISORDER [None]
